FAERS Safety Report 5734184-X (Version None)
Quarter: 2008Q2

REPORT INFORMATION
  Report Type: 
  Country: None (occurrence: None)
  Receive Date: 20080510
  Receipt Date: 20080505
  Transmission Date: 20081010
  Serious: Yes (Other)
  Sender: FDA-Public Use
  Company Number: PHEH1999US04010

PATIENT
  Sex: Female

DRUGS (11)
  1. IBUPROFEN TABLETS [Concomitant]
  2. GLYBURIDE [Concomitant]
  3. CALCIUM WITH VITAMIN D [Concomitant]
  4. LAMISIL [Suspect]
     Indication: ONYCHOMYCOSIS
     Dosage: 250 MG, BID
     Route: 048
  5. PRILOSEC [Concomitant]
  6. GLIPIZIDE [Concomitant]
  7. METFORMIN HCL [Concomitant]
  8. LIPITOR [Concomitant]
  9. GABAPENTIN [Concomitant]
  10. ASPIRIN [Concomitant]
  11. VITAMIN CAP [Concomitant]

REACTIONS (9)
  - DEAFNESS [None]
  - DIZZINESS [None]
  - FLATULENCE [None]
  - GAIT DISTURBANCE [None]
  - HEADACHE [None]
  - HYPERACUSIS [None]
  - NAUSEA [None]
  - STOMACH DISCOMFORT [None]
  - TINNITUS [None]
